FAERS Safety Report 13129200 (Version 2)
Quarter: 2017Q1

REPORT INFORMATION
  Report Type: Report from Study
  Country: CN (occurrence: CN)
  Receive Date: 20170119
  Receipt Date: 20170123
  Transmission Date: 20170428
  Serious: Yes (Hospitalization, Other)
  Sender: FDA-Public Use
  Company Number: CN-ROCHE-1702068

PATIENT
  Sex: Female
  Weight: 40 kg

DRUGS (1)
  1. AVASTIN [Suspect]
     Active Substance: BEVACIZUMAB
     Indication: COLON CANCER
     Route: 041
     Dates: start: 20151010, end: 20161124

REACTIONS (9)
  - Intestinal obstruction [Unknown]
  - Marasmus [Unknown]
  - Weight decreased [Unknown]
  - Small intestine carcinoma [Unknown]
  - Metastasis [Unknown]
  - General physical health deterioration [Unknown]
  - Feeding disorder [Unknown]
  - Small intestinal obstruction [Unknown]
  - Decreased appetite [Unknown]
